FAERS Safety Report 10042975 (Version 1)
Quarter: 2014Q1

REPORT INFORMATION
  Report Type: Spontaneous
  Country: US (occurrence: US)
  Receive Date: 20140328
  Receipt Date: 20140328
  Transmission Date: 20141002
  Serious: No
  Sender: FDA-Public Use
  Company Number: US-009507513-1403USA009492

PATIENT
  Sex: Female

DRUGS (2)
  1. ZOSTAVAX [Suspect]
     Indication: PROPHYLAXIS
     Dates: start: 20140315, end: 20140315
  2. CLARITIN [Suspect]
     Dosage: UNK
     Route: 048
     Dates: start: 201403

REACTIONS (5)
  - Lip blister [Unknown]
  - Pruritus [Unknown]
  - Paraesthesia [Unknown]
  - Injection site erythema [Unknown]
  - Injection site rash [Unknown]
